FAERS Safety Report 7972175-9 (Version None)
Quarter: 2011Q4

REPORT INFORMATION
  Report Type: 
  Country: None (occurrence: None)
  Receive Date: 20111212
  Receipt Date: 20111201
  Transmission Date: 20120403
  Serious: Yes (Hospitalization, Other)
  Sender: FDA-Public Use
  Company Number: US-BAXTER-2011BH038205

PATIENT
  Age: 23 Year
  Sex: Male
  Weight: 78 kg

DRUGS (31)
  1. CEFEPIME [Suspect]
     Indication: BACTERIAL INFECTION
     Route: 065
     Dates: start: 20110924
  2. DILAUDID [Concomitant]
     Indication: PAIN
     Route: 065
     Dates: start: 20110628, end: 20111016
  3. MARINOL [Concomitant]
     Indication: NAUSEA
     Route: 065
     Dates: start: 20110404, end: 20111016
  4. KYTRIL [Concomitant]
     Indication: VOMITING
     Route: 065
     Dates: start: 20111006
  5. HEPARIN LOCK-FLUSH [Concomitant]
     Indication: THROMBOSIS PROPHYLAXIS
     Route: 065
     Dates: start: 20110331, end: 20110916
  6. CHLORHEXIDINE GLUCONATE [Concomitant]
     Indication: GINGIVITIS
     Route: 065
     Dates: start: 20110821, end: 20110919
  7. CIPROFLOXACIN IN DEXTROSE 5% [Suspect]
     Indication: PROPHYLAXIS
     Route: 065
     Dates: start: 20110914, end: 20110916
  8. FLUCONAZOLE [Suspect]
     Indication: BACTERIAL INFECTION
     Route: 065
     Dates: start: 20110331, end: 20110916
  9. METRONIDAZOLE IN PLASTIC CONTAINER [Suspect]
     Indication: BACTERIAL INFECTION
     Route: 042
  10. CELEXA [Concomitant]
     Indication: DEPRESSION
     Route: 065
     Dates: start: 20110331
  11. LIDOCAINE [Concomitant]
     Indication: PROCTALGIA
     Route: 065
     Dates: start: 20110919
  12. NYSTATIN [Concomitant]
     Indication: MUCOSAL INFLAMMATION
     Route: 065
     Dates: start: 20110821, end: 20110919
  13. DOCUSATE SODIUM [Concomitant]
     Indication: CONSTIPATION
     Route: 065
     Dates: start: 20110613
  14. SCOPOLAMINE [Concomitant]
     Indication: NAUSEA
     Route: 065
     Dates: start: 20111006, end: 20111014
  15. MORPHINE SULFATE [Concomitant]
     Indication: PAIN
     Route: 065
     Dates: start: 20111015
  16. METHYLPHENIDATE HCL [Concomitant]
     Indication: ATTENTION DEFICIT/HYPERACTIVITY DISORDER
     Route: 065
     Dates: start: 20110311
  17. POLYETHYLENE GLYCOL [Concomitant]
     Indication: CONSTIPATION
     Route: 065
     Dates: start: 20110722, end: 20110919
  18. FLUCONAZOLE [Suspect]
     Indication: PROPHYLAXIS
     Route: 065
     Dates: start: 20110331, end: 20110916
  19. FAMCICLOVIR [Concomitant]
     Indication: ANOGENITAL WARTS
     Route: 065
     Dates: start: 20110331
  20. LORATADINE [Concomitant]
     Indication: SEASONAL ALLERGY
     Route: 065
     Dates: start: 20110331
  21. SENNOSIDE A+B [Concomitant]
     Indication: CONSTIPATION
     Route: 065
     Dates: start: 20110906, end: 20110919
  22. CIPROFLOXACIN IN DEXTROSE 5% [Suspect]
     Indication: BACTERIAL INFECTION
     Route: 065
     Dates: start: 20110914, end: 20110916
  23. VANCOMYCIN HCL [Suspect]
     Indication: BACTERIAL INFECTION
     Route: 042
     Dates: start: 20110922
  24. OMEPRAZOLE [Concomitant]
     Indication: PROPHYLAXIS
     Route: 065
     Dates: start: 20110413, end: 20111017
  25. NEUPOGEN [Concomitant]
     Indication: NEUTROPENIA
     Route: 065
     Dates: start: 20110616, end: 20110914
  26. ATIVAN [Concomitant]
     Indication: NAUSEA
     Route: 065
     Dates: start: 20110311
  27. MEPRON [Concomitant]
     Indication: BACTERIAL INFECTION
     Route: 065
     Dates: start: 20110722
  28. BACLOFEN [Suspect]
     Indication: MUSCLE SPASMS
     Route: 065
     Dates: start: 20111013
  29. FENTANYL [Concomitant]
     Indication: PAIN
     Route: 065
     Dates: start: 20110919, end: 20111017
  30. DEMEROL [Concomitant]
     Indication: PAIN
     Route: 065
     Dates: start: 20111016
  31. HYDROCORTISONE/LIDOCAINE [Concomitant]
     Indication: PROCTALGIA
     Route: 065
     Dates: start: 20110919

REACTIONS (12)
  - PNEUMONIA FUNGAL [None]
  - HALLUCINATION [None]
  - CLOSTRIDIUM TEST POSITIVE [None]
  - CHEST PAIN [None]
  - DYSKINESIA [None]
  - FEBRILE NEUTROPENIA [None]
  - SINUSITIS [None]
  - TOXICITY TO VARIOUS AGENTS [None]
  - CONFUSIONAL STATE [None]
  - FUNGAL INFECTION [None]
  - BACTERIAL INFECTION [None]
  - ABDOMINAL PAIN [None]
